FAERS Safety Report 14568906 (Version 1)
Quarter: 2018Q1

REPORT INFORMATION
  Report Type: Spontaneous
  Country: DK (occurrence: DK)
  Receive Date: 20180223
  Receipt Date: 20180223
  Transmission Date: 20180509
  Serious: Yes (Hospitalization)
  Sender: FDA-Public Use
  Company Number: DK-B. BRAUN MEDICAL INC.-2042503

PATIENT
  Age: 78 Year
  Sex: Female

DRUGS (7)
  1. ERYTHROMYCIN. [Concomitant]
     Active Substance: ERYTHROMYCIN
  2. DICILLIN [Concomitant]
     Active Substance: DICLOXACILLIN SODIUM
  3. AVELOX [Concomitant]
     Active Substance: MOXIFLOXACIN HYDROCHLORIDE
  4. CEFUROXIME FOR INJECTION USP AND DEXTROSE INJECTION USP [Suspect]
     Active Substance: CEFUROXIME SODIUM
     Indication: INFECTION
     Route: 042
     Dates: start: 20161005, end: 20161005
  5. PENICILLIN [Concomitant]
     Active Substance: PENICILLIN
  6. PRIMCILLINE [Concomitant]
  7. OXYGEN. [Concomitant]
     Active Substance: OXYGEN

REACTIONS (3)
  - Hypersensitivity [Recovered/Resolved]
  - Dyspnoea [Recovered/Resolved]
  - Pharyngeal oedema [Recovered/Resolved]

NARRATIVE: CASE EVENT DATE: 20161005
